FAERS Safety Report 9525798 (Version 1)
Quarter: 2013Q3

REPORT INFORMATION
  Report Type: Spontaneous
  Country: US (occurrence: US)
  Receive Date: 20130916
  Receipt Date: 20130916
  Transmission Date: 20140515
  Serious: Yes (Hospitalization, Other)
  Sender: FDA-Public Use
  Company Number: US-BIOGENIDEC-2013BI087227

PATIENT
  Age: 66 Year
  Sex: Female

DRUGS (2)
  1. AVONEX [Suspect]
     Indication: MULTIPLE SCLEROSIS
     Route: 030
     Dates: start: 20100927
  2. AVONEX [Suspect]
     Indication: MULTIPLE SCLEROSIS
     Route: 030
     Dates: start: 20120809

REACTIONS (7)
  - Intervertebral disc protrusion [Recovered/Resolved]
  - Knee arthroplasty [Recovered/Resolved]
  - Spinal rod insertion [Recovered/Resolved]
  - Tendonitis [Not Recovered/Not Resolved]
  - Burning sensation [Not Recovered/Not Resolved]
  - Arthritis [Recovered/Resolved]
  - Pain [Not Recovered/Not Resolved]
